FAERS Safety Report 5034562-0 (Version None)
Quarter: 2006Q2

REPORT INFORMATION
  Report Type: 
  Country: None (occurrence: None)
  Receive Date: 20060620
  Receipt Date: 20060605
  Transmission Date: 20061013
  Serious: Yes (Death)
  Sender: FDA-Public Use
  Company Number: 225340

PATIENT
  Age: 62 Year

DRUGS (3)
  1. HERCEPTIN [Suspect]
     Indication: BREAST CANCER
     Dosage: 231 MG, QD, INTRAVENOUS
     Route: 042
     Dates: start: 20060308, end: 20060308
  2. NAVELBINE [Concomitant]
  3. AREDIA [Concomitant]

REACTIONS (4)
  - CARDIAC FAILURE [None]
  - DIZZINESS [None]
  - HYPOTENSION [None]
  - MYOCARDIAL INFARCTION [None]
